FAERS Safety Report 7315870-7 (Version None)
Quarter: 2011Q1

REPORT INFORMATION
  Report Type: 
  Country: None (occurrence: None)
  Receive Date: 20110119
  Receipt Date: 20100716
  Transmission Date: 20110831
  Serious: Yes (Other)
  Sender: FDA-Public Use
  Company Number: A-NJ2010-36356

PATIENT
  Age: 76 Year
  Sex: Female
  Weight: 88.9 kg

DRUGS (4)
  1. TRACLEER [Suspect]
     Indication: PULMONARY ARTERIAL HYPERTENSION
     Dosage: 125 MG, BID, ORAL, MG, BID, ORAL
     Route: 048
     Dates: start: 20100414, end: 20100430
  2. TRACLEER [Suspect]
     Indication: PULMONARY ARTERIAL HYPERTENSION
     Dosage: 125 MG, BID, ORAL, MG, BID, ORAL
     Route: 048
     Dates: start: 20100301, end: 20100413
  3. CALCIUM CHANNEL BLOCKERS [Concomitant]
  4. ASPIRIN (ACETYLSALICYLIC ACID) [Concomitant]

REACTIONS (7)
  - TRANSAMINASES INCREASED [None]
  - FATIGUE [None]
  - QUALITY OF LIFE DECREASED [None]
  - ASPARTATE AMINOTRANSFERASE INCREASED [None]
  - FEELING ABNORMAL [None]
  - ASTHENIA [None]
  - ALANINE AMINOTRANSFERASE INCREASED [None]
